FAERS Safety Report 19294783 (Version 2)
Quarter: 2021Q2

REPORT INFORMATION
  Report Type: Spontaneous
  Country: SE (occurrence: SE)
  Receive Date: 20210524
  Receipt Date: 20210614
  Transmission Date: 20210717
  Serious: Yes (Other)
  Sender: FDA-Public Use
  Company Number: SE-AUROBINDO-AUR-APL-2021-020135

PATIENT
  Age: 34 Year
  Sex: Female

DRUGS (1)
  1. AMOXICILLIN AUROBINDO [Suspect]
     Active Substance: AMOXICILLIN
     Indication: CHLAMYDIAL INFECTION
     Dosage: UNK
     Route: 048
     Dates: start: 20210430, end: 20210506

REACTIONS (3)
  - Abdominal pain upper [Unknown]
  - Abortion spontaneous [Unknown]
  - Maternal exposure timing unspecified [Unknown]

NARRATIVE: CASE EVENT DATE: 20210508
